FAERS Safety Report 5431398-3 (Version None)
Quarter: 2007Q3

REPORT INFORMATION
  Report Type: 
  Country: None (occurrence: None)
  Receive Date: 20070830
  Receipt Date: 20070523
  Transmission Date: 20080115
  Serious: No
  Sender: FDA-Public Use
  Company Number: A0652918A

PATIENT
  Sex: Male

DRUGS (1)
  1. BUPROPION HYDROCHLORIDE [Suspect]
     Indication: DEPRESSION
     Route: 048

REACTIONS (1)
  - FATIGUE [None]
